FAERS Safety Report 7549456-6 (Version None)
Quarter: 2011Q2

REPORT INFORMATION
  Report Type: 
  Country: None (occurrence: None)
  Receive Date: 20110615
  Receipt Date: 20041220
  Transmission Date: 20111010
  Serious: Yes (Other)
  Sender: FDA-Public Use
  Company Number: PHFR2003GB01532

PATIENT
  Sex: Male

DRUGS (1)
  1. CLOZAPINE [Suspect]
     Indication: SCHIZOPHRENIA
     Dosage: 300 MG, QD
     Route: 048
     Dates: start: 20020509, end: 20041215

REACTIONS (4)
  - DIZZINESS [None]
  - IMMOBILE [None]
  - PALPITATIONS [None]
  - WOLFF-PARKINSON-WHITE SYNDROME [None]
